FAERS Safety Report 25469750 (Version 3)
Quarter: 2025Q3

REPORT INFORMATION
  Report Type: Spontaneous
  Country: CA (occurrence: CA)
  Receive Date: 20250623
  Receipt Date: 20250730
  Transmission Date: 20251021
  Serious: No
  Sender: PFIZER
  Company Number: CA-PFIZER INC-202500119701

PATIENT
  Sex: Male

DRUGS (2)
  1. FRAGMIN [Suspect]
     Active Substance: DALTEPARIN SODIUM
     Route: 058
  2. FRAGMIN [Suspect]
     Active Substance: DALTEPARIN SODIUM

REACTIONS (3)
  - Needle issue [Unknown]
  - Device mechanical issue [Unknown]
  - Device physical property issue [Unknown]
